FAERS Safety Report 21302086 (Version 3)
Quarter: 2022Q4

REPORT INFORMATION
  Report Type: Report from Study
  Country: MX (occurrence: MX)
  Receive Date: 20220907
  Receipt Date: 20221111
  Transmission Date: 20230112
  Serious: Yes (Other)
  Sender: FDA-Public Use
  Company Number: MX-NOVARTISPH-NVSC2022MX201426

PATIENT
  Sex: Female

DRUGS (1)
  1. TASIGNA [Suspect]
     Active Substance: NILOTINIB
     Indication: Chronic myeloid leukaemia
     Dosage: UNK
     Route: 048

REACTIONS (7)
  - Paralysis [Unknown]
  - Glycosylated haemoglobin increased [Unknown]
  - Gastritis [Unknown]
  - Blood glucose increased [Unknown]
  - Constipation [Unknown]
  - Malaise [Unknown]
  - Weight decreased [Unknown]
